FAERS Safety Report 9553508 (Version 1)
Quarter: 2013Q3

REPORT INFORMATION
  Report Type: Spontaneous
  Country: FR (occurrence: FR)
  Receive Date: 20130925
  Receipt Date: 20130925
  Transmission Date: 20140515
  Serious: Yes (Disabling)
  Sender: FDA-Public Use
  Company Number: FR-PFIZER INC-2013271847

PATIENT
  Age: 66 Year
  Sex: Male

DRUGS (3)
  1. TAHOR [Suspect]
     Dosage: 40 MG, 1X/DAY
     Route: 048
     Dates: start: 199904, end: 20130906
  2. ISOPTINE [Interacting]
     Dosage: 120 MG, 1X/DAY
     Route: 048
  3. KARDEGIC [Concomitant]
     Dosage: 160 MG, 1X/DAY
     Route: 048

REACTIONS (2)
  - Drug interaction [Unknown]
  - Tendon rupture [Recovering/Resolving]
